FAERS Safety Report 4299565-2 (Version None)
Quarter: 2004Q1

REPORT INFORMATION
  Report Type: 
  Country: None (occurrence: None)
  Receive Date: 20040217
  Receipt Date: 20040209
  Transmission Date: 20041129
  Serious: Yes (Hospitalization)
  Sender: FDA-Public Use
  Company Number: 2004-02-0552

PATIENT
  Age: 40 Year
  Sex: Female

DRUGS (3)
  1. REBETOL [Suspect]
     Indication: HEPATITIS C
     Dosage: 600 MG QD ORAL
     Route: 048
     Dates: start: 20030901, end: 20040208
  2. INTRON A [Suspect]
     Indication: HEPATITIS C
     Dosage: 6 MU QD INTRAMUSCULAR
     Route: 030
     Dates: start: 20030901, end: 20040206
  3. DICLOFENAC SODIUM [Suspect]
     Indication: HEADACHE
     Dosage: QD ORAL
     Route: 048

REACTIONS (1)
  - MELAENA [None]
